FAERS Safety Report 5994108-7 (Version None)
Quarter: 2008Q4

REPORT INFORMATION
  Report Type: 
  Country: None (occurrence: None)
  Receive Date: 20081212
  Receipt Date: 20081204
  Transmission Date: 20090506
  Serious: Yes (Other)
  Sender: FDA-Public Use
  Company Number: DE-JNJFOC-20081201167

PATIENT
  Age: 58 Year
  Weight: 87.8 kg

DRUGS (1)
  1. REMICADE [Suspect]
     Indication: CROHN'S DISEASE
     Dosage: 4 OR 5 INFUSIONS ADMINISTERED
     Route: 042

REACTIONS (1)
  - HYPOAESTHESIA ORAL [None]
